FAERS Safety Report 4758988-5 (Version None)
Quarter: 2005Q3

REPORT INFORMATION
  Report Type: 
  Country: None (occurrence: None)
  Receive Date: 20050826
  Receipt Date: 20050815
  Transmission Date: 20060218
  Serious: No
  Sender: FDA-Public Use
  Company Number: 05H-163-0302084-00

PATIENT
  Age: 73 Year
  Sex: Female
  Weight: 58.5 kg

DRUGS (5)
  1. FENTANYL CITRATE [Suspect]
     Indication: SEDATION
     Dosage: 25 MCG, 3 IN 2 HR, INTRAVENOUS
     Route: 042
     Dates: start: 20050803, end: 20050803
  2. MIDAZOLAM HYDROCHLORIDE [Suspect]
     Indication: SEDATION
     Dosage: 0.5 MG, 3 IN 2 HR, INTRAVENOUS
     Route: 042
     Dates: start: 20050803, end: 20050803
  3. IOPAMIDOL [Suspect]
     Indication: STENT PLACEMENT
     Dosage: 265 ML, ONCE INTRACORONARY
     Route: 022
     Dates: start: 20050803, end: 20050803
  4. SOLU-MEDROL [Concomitant]
  5. BENADRYL [Concomitant]

REACTIONS (5)
  - HYPERSENSITIVITY [None]
  - LOSS OF CONSCIOUSNESS [None]
  - PROCEDURAL COMPLICATION [None]
  - RESPIRATORY DEPRESSION [None]
  - SEDATION [None]
